FAERS Safety Report 7092915-3 (Version None)
Quarter: 2010Q4

REPORT INFORMATION
  Report Type: 
  Country: None (occurrence: None)
  Receive Date: 20101110
  Receipt Date: 20101104
  Transmission Date: 20110411
  Serious: Yes (Other)
  Sender: FDA-Public Use
  Company Number: US-PFIZER INC-2010141014

PATIENT
  Sex: Female
  Weight: 70.295 kg

DRUGS (7)
  1. CHANTIX [Suspect]
     Indication: SMOKING CESSATION THERAPY
     Dosage: 0.5 MG, DAILY
     Route: 048
     Dates: start: 20101103, end: 20101103
  2. DIOVAN HCT [Concomitant]
     Indication: HYPERTENSION
     Dosage: UNK
  3. METFORMIN [Concomitant]
     Indication: DIABETES MELLITUS
     Dosage: UNK
  4. GABAPENTIN [Concomitant]
     Dosage: 100 MG, UNK
  5. CRESTOR [Concomitant]
     Dosage: 5 MG, UNK
  6. RANITIDINE [Concomitant]
     Dosage: UNK
  7. DOXYCYCLINE [Concomitant]
     Dosage: UNK

REACTIONS (3)
  - OEDEMA MOUTH [None]
  - RASH [None]
  - URTICARIA [None]
